FAERS Safety Report 7678268-8 (Version None)
Quarter: 2011Q3

REPORT INFORMATION
  Report Type: 
  Country: None (occurrence: None)
  Receive Date: 20110808
  Receipt Date: 20110304
  Transmission Date: 20111222
  Serious: Yes (Hospitalization, Other)
  Sender: FDA-Public Use
  Company Number: 2128643-2011-00020

PATIENT

DRUGS (2)
  1. TRIAD ALCOHOL PREP PADS [Suspect]
     Indication: INFECTION PROPHYLAXIS
  2. PEGASYS KIT [Concomitant]

REACTIONS (4)
  - ENDOCARDITIS BACTERIAL [None]
  - BACILLUS INFECTION [None]
  - DELIRIUM [None]
  - DYSPNOEA [None]
